FAERS Safety Report 17802528 (Version 1)
Quarter: 2020Q2

REPORT INFORMATION
  Report Type: Report from Study
  Country: TH (occurrence: TH)
  Receive Date: 20200519
  Receipt Date: 20200519
  Transmission Date: 20200714
  Serious: Yes (Death, Other)
  Sender: FDA-Public Use
  Company Number: TH-BAYER-2020-089045

PATIENT
  Age: 71 Year

DRUGS (2)
  1. ULTRAVIST [Suspect]
     Active Substance: IOPROMIDE
     Dosage: 130 ML, ONCE
  2. ALTEPLASE. [Concomitant]
     Active Substance: ALTEPLASE

REACTIONS (2)
  - Haemorrhagic transformation stroke [Fatal]
  - Acute kidney injury [None]
